FAERS Safety Report 4849038-0 (Version None)
Quarter: 2005Q4

REPORT INFORMATION
  Report Type: 
  Country: None (occurrence: None)
  Receive Date: 20051209
  Receipt Date: 20051129
  Transmission Date: 20060501
  Serious: Yes (Hospitalization, Other)
  Sender: FDA-Public Use
  Company Number: US-JNJFOC-20050802613

PATIENT
  Sex: Female
  Weight: 68.04 kg

DRUGS (4)
  1. REMICADE [Suspect]
     Route: 042
  2. PENTASA [Concomitant]
  3. ENTOCORT [Concomitant]
     Dosage: QAM
  4. COLAZAL [Concomitant]

REACTIONS (5)
  - BRONCHITIS [None]
  - CARDIAC FAILURE CONGESTIVE [None]
  - CARDIOMYOPATHY [None]
  - COLITIS [None]
  - VIRAL MYOCARDITIS [None]
